FAERS Safety Report 23616296 (Version 1)
Quarter: 2024Q1

REPORT INFORMATION
  Report Type: Spontaneous
  Country: US (occurrence: None)
  Receive Date: 20240309
  Receipt Date: 20240309
  Transmission Date: 20240410
  Serious: Yes (Hospitalization)
  Sender: FDA-Public Use
  Company Number: None

PATIENT
  Age: 87 Year
  Sex: Male
  Weight: 89.2 kg

DRUGS (1)
  1. CISPLATIN [Suspect]
     Active Substance: CISPLATIN
     Dates: end: 20200508

REACTIONS (13)
  - Pharyngeal haemorrhage [None]
  - Hypophagia [None]
  - Dysphagia [None]
  - Blood pressure systolic decreased [None]
  - Haemoglobin decreased [None]
  - Haematocrit decreased [None]
  - Pneumonia aspiration [None]
  - Pulmonary haemorrhage [None]
  - Metastases to lymph nodes [None]
  - Confusional state [None]
  - Pneumothorax [None]
  - Haemoptysis [None]
  - Mouth haemorrhage [None]

NARRATIVE: CASE EVENT DATE: 20200528
